FAERS Safety Report 8136694-7 (Version None)
Quarter: 2012Q1

REPORT INFORMATION
  Report Type: 
  Country: None (occurrence: None)
  Receive Date: 20120214
  Receipt Date: 20120130
  Transmission Date: 20120608
  Serious: Yes (Hospitalization)
  Sender: FDA-Public Use
  Company Number: MK-WATSON-2012-02168

PATIENT
  Age: 7 Year
  Sex: Female

DRUGS (1)
  1. TRELSTAR [Suspect]
     Indication: PRECOCIOUS PUBERTY
     Dosage: MONTHLY DEPOT THERAPY X9 MONTHS
     Route: 030

REACTIONS (1)
  - THROMBOCYTOPENIA [None]
